FAERS Safety Report 23908828 (Version 1)
Quarter: 2024Q2

REPORT INFORMATION
  Report Type: Spontaneous
  Country: US (occurrence: US)
  Receive Date: 20240528
  Receipt Date: 20240528
  Transmission Date: 20240716
  Serious: No
  Sender: FDA-Public Use
  Company Number: US-PERRIGO-23US006971

PATIENT
  Sex: Male

DRUGS (3)
  1. MINOXIDIL [Suspect]
     Active Substance: MINOXIDIL
     Indication: Hair growth abnormal
     Dosage: HALF CAPFUL, BID
     Route: 061
     Dates: start: 20230315, end: 20230531
  2. MINOXIDIL [Suspect]
     Active Substance: MINOXIDIL
     Dosage: 3 CAPFULS, BID
     Route: 061
     Dates: start: 20230601, end: 20230608
  3. MINOXIDIL [Suspect]
     Active Substance: MINOXIDIL
     Dosage: HALF CAPFUL, BID
     Route: 061
     Dates: start: 20230609

REACTIONS (1)
  - Overdose [Recovered/Resolved]

NARRATIVE: CASE EVENT DATE: 20230601
